FAERS Safety Report 20640550 (Version 1)
Quarter: 2022Q1

REPORT INFORMATION
  Report Type: Spontaneous
  Country: US (occurrence: US)
  Receive Date: 20220327
  Receipt Date: 20220327
  Transmission Date: 20220423
  Serious: No
  Sender: FDA-Public Use
  Company Number: US-SA-SAC20220322000407

PATIENT
  Age: 61 Year
  Sex: Female

DRUGS (12)
  1. KEVZARA [Suspect]
     Active Substance: SARILUMAB
     Indication: Tendonitis
     Dosage: 200MG, QOW
     Route: 058
  2. PREDNISONE [Concomitant]
     Active Substance: PREDNISONE
  3. BACLOFEN [Concomitant]
     Active Substance: BACLOFEN
  4. ESTRADIOL [Concomitant]
     Active Substance: ESTRADIOL
  5. IBUPROFEN [Concomitant]
     Active Substance: IBUPROFEN
  6. LISINOPRIL [Concomitant]
     Active Substance: LISINOPRIL
  7. METHYLPREDNISOLONE [Concomitant]
     Active Substance: METHYLPREDNISOLONE
  8. OXYCODONE [Concomitant]
     Active Substance: OXYCODONE
  9. SYNTHROID [Concomitant]
     Active Substance: LEVOTHYROXINE SODIUM
  10. XELJANZ [Concomitant]
     Active Substance: TOFACITINIB CITRATE
  11. CIPROFLOXACIN [Concomitant]
     Active Substance: CIPROFLOXACIN
  12. HYDROCHLOROTHIAZIDE [Concomitant]
     Active Substance: HYDROCHLOROTHIAZIDE

REACTIONS (4)
  - Eye swelling [Recovered/Resolved]
  - Lip swelling [Recovered/Resolved]
  - Urticaria [Recovered/Resolved]
  - Product use in unapproved indication [Unknown]
